FAERS Safety Report 15164959 (Version 1)
Quarter: 2018Q3

REPORT INFORMATION
  Report Type: Spontaneous
  Country: ES (occurrence: ES)
  Receive Date: 20180719
  Receipt Date: 20180719
  Transmission Date: 20181010
  Serious: No
  Sender: FDA-Public Use
  Company Number: ES-ALKEM LABORATORIES LIMITED-ES-ALKEM-2018-03603

PATIENT
  Age: 51 Year
  Sex: Female

DRUGS (5)
  1. COTRIMOXAZOLE [Concomitant]
     Active Substance: SULFAMETHOXAZOLE\TRIMETHOPRIM
     Indication: STENOTROPHOMONAS INFECTION
     Dosage: 5 ML, UNK
     Route: 065
  2. LINEZOLID. [Suspect]
     Active Substance: LINEZOLID
     Indication: STREPTOCOCCAL BACTERAEMIA
     Dosage: 600 MG, BID
     Route: 048
  3. HEPARIN [Concomitant]
     Active Substance: HEPARIN SODIUM
     Dosage: 10 MG/ML, CATHETER LOCK THERAPY FOR FOR 12 H.
     Route: 065
  4. HEPARIN [Concomitant]
     Active Substance: HEPARIN SODIUM
     Indication: STENOTROPHOMONAS INFECTION
     Dosage: 5 ML, UNK
     Route: 065
  5. COTRIMOXAZOLE [Concomitant]
     Active Substance: SULFAMETHOXAZOLE\TRIMETHOPRIM
     Dosage: 10 MG/ML, CATHETER LOCK THERAPY FOR FOR 12 H.UNK
     Route: 065

REACTIONS (1)
  - Nausea [Unknown]
